FAERS Safety Report 4704954-5 (Version None)
Quarter: 2005Q3

REPORT INFORMATION
  Report Type: 
  Country: None (occurrence: None)
  Receive Date: 20050701
  Receipt Date: 20050622
  Transmission Date: 20060218
  Serious: Yes (Hospitalization)
  Sender: FDA-Public Use
  Company Number: FR-BRISTOL-MYERS SQUIBB COMPANY-13014998

PATIENT
  Age: 48 Year
  Sex: Male

DRUGS (4)
  1. COAPROVEL TABS [Suspect]
     Dosage: 1 TABLET DAILY
     Route: 048
     Dates: start: 20050330, end: 20050422
  2. CEFTRIAXONE [Suspect]
     Indication: PYREXIA
     Dosage: HAD 2 INJECTIONS
     Route: 051
     Dates: start: 20050419, end: 20050420
  3. CEFTRIAXONE [Suspect]
     Indication: ASTHENIA
     Dosage: HAD 2 INJECTIONS
     Route: 051
     Dates: start: 20050419, end: 20050420
  4. CEFTRIAXONE [Suspect]
     Indication: ANOREXIA
     Dosage: HAD 2 INJECTIONS
     Route: 051
     Dates: start: 20050419, end: 20050420

REACTIONS (9)
  - ALANINE AMINOTRANSFERASE INCREASED [None]
  - ANOREXIA [None]
  - ASPARTATE AMINOTRANSFERASE INCREASED [None]
  - ASTHENIA [None]
  - GAMMA-GLUTAMYLTRANSFERASE INCREASED [None]
  - OEDEMA PERIPHERAL [None]
  - PRURITUS [None]
  - PYREXIA [None]
  - RASH MACULO-PAPULAR [None]
